FAERS Safety Report 12620954 (Version 3)
Quarter: 2016Q3

REPORT INFORMATION
  Report Type: Report from Study
  Country: CN (occurrence: CN)
  Receive Date: 20160804
  Receipt Date: 20160831
  Transmission Date: 20161109
  Serious: Yes (Hospitalization, Other)
  Sender: FDA-Public Use
  Company Number: PHHY2016CN104257

PATIENT
  Age: 34 Year
  Sex: Male

DRUGS (74)
  1. STEM CELLS [Suspect]
     Active Substance: STEM CELLS
     Dosage: 1 DF, UNK
     Route: 065
     Dates: start: 20160523, end: 20160523
  2. CEPHAZOLINE SODIUM [Concomitant]
     Active Substance: CEFAZOLIN SODIUM
     Indication: SKIN TEST
     Dosage: 500 MG, PRN
     Route: 058
     Dates: start: 20160503, end: 20160503
  3. CETIRIZINE HYDROCHLORIDE. [Concomitant]
     Active Substance: CETIRIZINE HYDROCHLORIDE
     Indication: PROPHYLAXIS
     Dosage: 10 MG, PRN
     Route: 048
     Dates: start: 20160509, end: 20160509
  4. CETIRIZINE HYDROCHLORIDE. [Concomitant]
     Active Substance: CETIRIZINE HYDROCHLORIDE
     Dosage: 10 MG, PRN
     Route: 048
     Dates: start: 20160523, end: 20160523
  5. FUROSEMIDE. [Concomitant]
     Active Substance: FUROSEMIDE
     Dosage: 200 MG, PRN
     Route: 042
     Dates: start: 20160506, end: 20160506
  6. FUROSEMIDE. [Concomitant]
     Active Substance: FUROSEMIDE
     Dosage: 40 MG, PRN
     Route: 042
     Dates: start: 20160507, end: 20160507
  7. FUROSEMIDE. [Concomitant]
     Active Substance: FUROSEMIDE
     Dosage: 40 MG, PRN
     Route: 042
     Dates: start: 20160515, end: 20160515
  8. PHOSPHOCREATINE SODIUM [Concomitant]
     Indication: PROPHYLAXIS
     Dosage: 2 G, PRN
     Route: 042
     Dates: start: 20160503, end: 20160503
  9. MYFORTIC [Suspect]
     Active Substance: MYCOPHENOLATE SODIUM
     Indication: RENAL TRANSPLANT
     Dosage: 1000 MG, QD
     Route: 065
     Dates: start: 20160502, end: 20160502
  10. STEM CELLS [Suspect]
     Active Substance: STEM CELLS
     Indication: PROPHYLAXIS
     Dosage: 1 DF, UNK
     Route: 065
     Dates: start: 20160502, end: 20160502
  11. TACROLIMUS. [Suspect]
     Active Substance: TACROLIMUS
     Indication: PROPHYLAXIS
     Dosage: 7.5 MG, QD
     Route: 065
     Dates: start: 20160503, end: 20160508
  12. DILTIAZEM HYDROCHLORIDE. [Concomitant]
     Active Substance: DILTIAZEM HYDROCHLORIDE
     Dosage: 60 MG, BID
     Route: 048
     Dates: start: 20160513, end: 20160523
  13. MEDIUM AND LONG CHAIN LIPID EMULSION [Concomitant]
     Dosage: 250 ML, PRN
     Route: 042
     Dates: start: 20160503, end: 20160505
  14. METHYLPREDNISOLONE. [Concomitant]
     Active Substance: METHYLPREDNISOLONE
     Indication: HYPERSENSITIVITY
     Dosage: 40 MG, PRN
     Route: 042
     Dates: start: 20160509, end: 20160509
  15. NIFEDIPINE. [Concomitant]
     Active Substance: NIFEDIPINE
     Indication: BLOOD PRESSURE INCREASED
     Dosage: 30 MG, PRN
     Route: 048
     Dates: start: 20160504, end: 20160504
  16. MYFORTIC [Suspect]
     Active Substance: MYCOPHENOLATE SODIUM
     Dosage: 1080 MG, QD
     Route: 065
     Dates: start: 20160504, end: 20160624
  17. MYFORTIC [Suspect]
     Active Substance: MYCOPHENOLATE SODIUM
     Dosage: UNK, QD
     Route: 065
     Dates: start: 20160625, end: 20160711
  18. METHYLPREDNISOLONE. [Suspect]
     Active Substance: METHYLPREDNISOLONE
     Indication: PROPHYLAXIS
     Dosage: 500 MG, QD
     Route: 065
     Dates: start: 20160502, end: 20160502
  19. TACROLIMUS. [Suspect]
     Active Substance: TACROLIMUS
     Indication: IMMUNOSUPPRESSANT DRUG THERAPY
     Dosage: 7 MG, QD
     Route: 065
     Dates: start: 20160509, end: 20160624
  20. FUROSEMIDE. [Concomitant]
     Active Substance: FUROSEMIDE
     Dosage: 160 MG, PRN
     Route: 042
     Dates: start: 20160504, end: 20160504
  21. METHYLPREDNISOLONE. [Concomitant]
     Active Substance: METHYLPREDNISOLONE
     Dosage: 40 MG, PRN
     Route: 042
     Dates: start: 20160516, end: 20160516
  22. OMEPRAZOLE SODIUM [Concomitant]
     Active Substance: OMEPRAZOLE SODIUM
     Dosage: 40 MG, BID
     Route: 042
     Dates: start: 20160503, end: 20160512
  23. PROMETHAZINE HYDROCHLORIDE. [Concomitant]
     Active Substance: PROMETHAZINE HYDROCHLORIDE
     Dosage: 25 MG, PRN
     Route: 042
     Dates: start: 20160516, end: 20160516
  24. METHYLPREDNISOLONE. [Suspect]
     Active Substance: METHYLPREDNISOLONE
     Indication: IMMUNOSUPPRESSANT DRUG THERAPY
     Dosage: 400 MG, QD
     Route: 065
     Dates: start: 20160505, end: 20160505
  25. SODIUM CHLORIDE. [Concomitant]
     Active Substance: SODIUM CHLORIDE
     Indication: PRODUCT USED FOR UNKNOWN INDICATION
     Dosage: 1500 ML, PRN
     Route: 042
     Dates: start: 20160503, end: 20160503
  26. FUROSEMIDE. [Concomitant]
     Active Substance: FUROSEMIDE
     Dosage: 40 MG, PRN
     Route: 042
     Dates: start: 20160509, end: 20160509
  27. LOW MOLECULE HEPARIN CALCIUM [Concomitant]
     Indication: ANTICOAGULANT THERAPY
     Dosage: 2500 IU, PRN
     Route: 042
     Dates: start: 20160509, end: 20160509
  28. LOW MOLECULE HEPARIN CALCIUM [Concomitant]
     Dosage: 2500 IU, PRN
     Route: 042
     Dates: start: 20160523, end: 20160523
  29. BASILIXIMAB [Suspect]
     Active Substance: BASILIXIMAB
     Indication: PROPHYLAXIS
     Dosage: 20 MG, QD
     Route: 065
     Dates: start: 20160502, end: 20160502
  30. TACROLIMUS. [Suspect]
     Active Substance: TACROLIMUS
     Dosage: 7 MG, QD
     Route: 065
     Dates: start: 20160625, end: 20160711
  31. CEFOTIAM [Concomitant]
     Active Substance: CEFOTIAM
     Dosage: 2000 MG, BID
     Route: 042
     Dates: start: 20160503, end: 20160513
  32. COMPOUND DIISOPROPYLAMINE DICHLOROACETATE [Concomitant]
     Active Substance: DIISOPROPYLAMMONIUM DICHLOROACETATE
     Indication: PROPHYLAXIS
     Dosage: 160 MG, PRN
     Route: 042
     Dates: start: 20160503, end: 20160503
  33. FUROSEMIDE. [Concomitant]
     Active Substance: FUROSEMIDE
     Indication: POLYURIA
     Dosage: 160 MG, PRN
     Route: 042
     Dates: start: 20160503, end: 20160503
  34. FUROSEMIDE. [Concomitant]
     Active Substance: FUROSEMIDE
     Dosage: 80 MG, PRN
     Route: 042
     Dates: start: 20160504, end: 20160504
  35. FUROSEMIDE. [Concomitant]
     Active Substance: FUROSEMIDE
     Dosage: 40 MG, PRN
     Route: 042
     Dates: start: 20160514, end: 20160514
  36. LOW MOLECULE HEPARIN CALCIUM [Concomitant]
     Dosage: 2500 IU, PRN
     Route: 042
     Dates: start: 20160516, end: 20160516
  37. NIFEDIPINE. [Concomitant]
     Active Substance: NIFEDIPINE
     Dosage: 30 MG, PRN
     Route: 048
     Dates: start: 20160506, end: 20160506
  38. PROMETHAZINE HYDROCHLORIDE. [Concomitant]
     Active Substance: PROMETHAZINE HYDROCHLORIDE
     Indication: HYPERSENSITIVITY
     Dosage: 25 MG, PRN
     Route: 030
     Dates: start: 20160509, end: 20160509
  39. REDUCED GLUTATHIONE [Concomitant]
     Indication: PROPHYLAXIS
     Dosage: 2400 MG, PRN
     Route: 042
     Dates: start: 20160503, end: 20160503
  40. MYFORTIC [Suspect]
     Active Substance: MYCOPHENOLATE SODIUM
     Indication: PROPHYLAXIS
     Dosage: 1440 MG, QD
     Route: 065
     Dates: start: 20160503, end: 20160503
  41. METHYLPREDNISOLONE. [Suspect]
     Active Substance: METHYLPREDNISOLONE
     Dosage: 16 MG, QD
     Route: 065
     Dates: start: 20160506
  42. STEM CELLS [Suspect]
     Active Substance: STEM CELLS
     Indication: IMMUNOSUPPRESSANT DRUG THERAPY
     Dosage: 1 DF, UNK
     Route: 065
     Dates: start: 20160509, end: 20160509
  43. DOXOFYLLINE [Concomitant]
     Active Substance: DOXOFYLLINE
     Indication: COUGH
     Dosage: 200 MG, QD
     Route: 042
     Dates: start: 20160503, end: 20160503
  44. DOXOFYLLINE [Concomitant]
     Active Substance: DOXOFYLLINE
     Indication: WHEEZING
     Dosage: 200 MG, PRN
     Route: 042
     Dates: start: 20160504, end: 20160509
  45. FUROSEMIDE. [Concomitant]
     Active Substance: FUROSEMIDE
     Dosage: 160 MG, PRN
     Route: 042
     Dates: start: 20160513, end: 20160513
  46. HEPARIN SODIUM. [Concomitant]
     Active Substance: HEPARIN SODIUM
     Indication: PROPHYLAXIS
     Dosage: 6250 IU, QD
     Route: 042
     Dates: start: 20160503, end: 20160516
  47. PROMETHAZINE HYDROCHLORIDE. [Concomitant]
     Active Substance: PROMETHAZINE HYDROCHLORIDE
     Dosage: 25 MG, PRN
     Route: 030
     Dates: start: 20160523, end: 20160523
  48. BASILIXIMAB [Suspect]
     Active Substance: BASILIXIMAB
     Indication: IMMUNOSUPPRESSANT DRUG THERAPY
     Dosage: 20 MG, QD
     Route: 065
     Dates: start: 20160506, end: 20160506
  49. STEM CELLS [Suspect]
     Active Substance: STEM CELLS
     Dosage: 1 DF, UNK
     Route: 065
     Dates: start: 20160516, end: 20160516
  50. SODIUM CHLORIDE. [Concomitant]
     Active Substance: SODIUM CHLORIDE
     Dosage: 100 ML, PRN
     Route: 042
     Dates: start: 20160523, end: 20160523
  51. CETIRIZINE HYDROCHLORIDE. [Concomitant]
     Active Substance: CETIRIZINE HYDROCHLORIDE
     Dosage: 10 MG, PRN
     Route: 048
     Dates: start: 20160516, end: 20160516
  52. DILTIAZEM HYDROCHLORIDE. [Concomitant]
     Active Substance: DILTIAZEM HYDROCHLORIDE
     Indication: PROPHYLAXIS
     Dosage: 30 MG, BID
     Route: 048
     Dates: start: 20160505, end: 20160505
  53. DOPAMINE HYDROCHLORIDE. [Concomitant]
     Active Substance: DOPAMINE HYDROCHLORIDE
     Indication: PROPHYLAXIS
     Dosage: 10 MG, QD
     Route: 042
     Dates: start: 20160503, end: 20160503
  54. FUROSEMIDE. [Concomitant]
     Active Substance: FUROSEMIDE
     Dosage: 80 MG, PRN
     Route: 042
     Dates: start: 20160509, end: 20160509
  55. HUMAN BLOOD ALBUMIN [Concomitant]
     Indication: SUPPLEMENTATION THERAPY
     Dosage: 20 G, PRN
     Route: 042
     Dates: start: 20160502, end: 20160502
  56. HUMAN BLOOD ALBUMIN [Concomitant]
     Dosage: 10 G, PRN
     Route: 042
     Dates: start: 20160503, end: 20160509
  57. METHYLPREDNISOLONE. [Concomitant]
     Active Substance: METHYLPREDNISOLONE
     Dosage: 40 MG, PRN
     Route: 042
     Dates: start: 20160523, end: 20160523
  58. OMEPRAZOLE SODIUM [Concomitant]
     Active Substance: OMEPRAZOLE SODIUM
     Indication: GASTRIC DISORDER
     Dosage: 80 MG, PRN
     Route: 042
     Dates: start: 20160503, end: 20160503
  59. PHOSPHOCREATINE SODIUM [Concomitant]
     Dosage: 2 G, QD
     Route: 042
     Dates: start: 20160503, end: 20160512
  60. SCOPOLAMINE HYDROBROMIDE. [Concomitant]
     Active Substance: SCOPOLAMINE HYDROBROMIDE
     Indication: PROPHYLAXIS
     Dosage: 300 UG, PRN
     Route: 030
     Dates: start: 20160502, end: 20160502
  61. METHYLPREDNISOLONE. [Suspect]
     Active Substance: METHYLPREDNISOLONE
     Dosage: 500 MG, QD
     Route: 065
     Dates: start: 20160506, end: 20160506
  62. SODIUM CHLORIDE. [Concomitant]
     Active Substance: SODIUM CHLORIDE
     Indication: PROPHYLAXIS
     Dosage: 50 ML, PRN
     Route: 042
     Dates: start: 20160503, end: 20160503
  63. SODIUM CHLORIDE. [Concomitant]
     Active Substance: SODIUM CHLORIDE
     Dosage: 50 ML, BID
     Route: 042
     Dates: start: 20160503, end: 20160509
  64. SODIUM CHLORIDE. [Concomitant]
     Active Substance: SODIUM CHLORIDE
     Dosage: 100 ML, PRN
     Route: 042
     Dates: start: 20160516, end: 20160516
  65. CEFOTIAM [Concomitant]
     Active Substance: CEFOTIAM
     Indication: PROPHYLAXIS
     Dosage: 2000 MG, SOS
     Route: 042
     Dates: start: 20160503, end: 20160503
  66. COMPOUND DIISOPROPYLAMINE DICHLOROACETATE [Concomitant]
     Active Substance: DIISOPROPYLAMMONIUM DICHLOROACETATE
     Dosage: 80 MG, PRN
     Route: 042
     Dates: start: 20160503, end: 20160516
  67. DILTIAZEM HYDROCHLORIDE. [Concomitant]
     Active Substance: DILTIAZEM HYDROCHLORIDE
     Dosage: 60 MG, BID
     Route: 048
     Dates: start: 20160506, end: 20160509
  68. DILTIAZEM HYDROCHLORIDE. [Concomitant]
     Active Substance: DILTIAZEM HYDROCHLORIDE
     Dosage: 30 MG, BID
     Route: 048
     Dates: start: 20160509, end: 20160513
  69. DILTIAZEM HYDROCHLORIDE. [Concomitant]
     Active Substance: DILTIAZEM HYDROCHLORIDE
     Dosage: 60 MG, BID
     Route: 048
     Dates: start: 20160523
  70. DOPAMINE HYDROCHLORIDE. [Concomitant]
     Active Substance: DOPAMINE HYDROCHLORIDE
     Dosage: 10 MG, PRN
     Route: 042
     Dates: start: 20160503, end: 20160523
  71. FUROSEMIDE. [Concomitant]
     Active Substance: FUROSEMIDE
     Dosage: 120 MG, PRN
     Route: 042
     Dates: start: 20160508, end: 20160508
  72. MEDIUM AND LONG CHAIN LIPID EMULSION [Concomitant]
     Indication: SUPPLEMENTATION THERAPY
     Dosage: 250 ML, QD
     Route: 042
     Dates: start: 20160503, end: 20160503
  73. PHENOBARBITAL. [Concomitant]
     Active Substance: PHENOBARBITAL
     Indication: PROPHYLAXIS
     Dosage: 100 MG, PRN
     Route: 030
     Dates: start: 20150502, end: 20150502
  74. REDUCED GLUTATHIONE [Concomitant]
     Dosage: 1200 MG, QD
     Route: 042
     Dates: start: 20160503, end: 20160516

REACTIONS (11)
  - Haemoglobin decreased [Unknown]
  - Blood urea increased [Unknown]
  - Hyperglycaemia [Unknown]
  - High density lipoprotein decreased [Unknown]
  - Neutrophil count increased [Unknown]
  - White blood cell count increased [Unknown]
  - Blood glucose increased [Unknown]
  - Platelet count increased [Unknown]
  - Lymphocyte count decreased [Unknown]
  - Blood cholesterol increased [Unknown]
  - Low density lipoprotein increased [Unknown]

NARRATIVE: CASE EVENT DATE: 20160502
